FAERS Safety Report 9529554 (Version 1)
Quarter: 2013Q3

REPORT INFORMATION
  Report Type: Spontaneous
  Country: US (occurrence: US)
  Receive Date: 20130917
  Receipt Date: 20130917
  Transmission Date: 20140515
  Serious: Yes (Other)
  Sender: FDA-Public Use
  Company Number: US-JNJFOC-20130904603

PATIENT
  Sex: Female

DRUGS (12)
  1. REMICADE [Suspect]
     Indication: RHEUMATOID ARTHRITIS
     Route: 042
  2. HUMIRA [Suspect]
     Indication: RHEUMATOID ARTHRITIS
     Route: 065
     Dates: start: 200212, end: 2003
  3. ENBREL [Suspect]
     Indication: RHEUMATOID ARTHRITIS
     Route: 065
  4. ORENCIA [Suspect]
     Indication: RHEUMATOID ARTHRITIS
     Route: 065
  5. ASA [Concomitant]
     Indication: CARDIOVASCULAR DISORDER
     Route: 065
  6. METFORMIN [Concomitant]
     Indication: DIABETES MELLITUS
     Route: 065
  7. FOLIC ACID [Concomitant]
     Route: 065
  8. B12 [Concomitant]
     Route: 065
  9. URSODIOL [Concomitant]
     Indication: ULCER
     Dosage: I IN THE MORNING AND 3 AT BEDTIME
     Route: 065
  10. DEXILANT [Concomitant]
     Indication: ULCER
     Route: 065
  11. IRON PILL [Concomitant]
     Route: 065
  12. BENICAR [Concomitant]
     Indication: HYPERTENSION
     Route: 065

REACTIONS (2)
  - Hip arthroplasty [Recovered/Resolved]
  - Blood cholesterol increased [Unknown]
